FAERS Safety Report 7489974-2 (Version None)
Quarter: 2011Q2

REPORT INFORMATION
  Report Type: 
  Country: None (occurrence: None)
  Receive Date: 20110519
  Receipt Date: 20110506
  Transmission Date: 20111010
  Serious: Yes (Disabling)
  Sender: FDA-Public Use
  Company Number: ES-JNJFOC-20110504469

PATIENT
  Age: 40 Year
  Sex: Female

DRUGS (2)
  1. LEVOFLOXACIN [Suspect]
     Indication: BRONCHITIS
     Route: 048
     Dates: start: 20101201, end: 20101201
  2. ALL OTHER THERAPEUTIC PRODUCT [Concomitant]
     Route: 065
     Dates: start: 20101201, end: 20101201

REACTIONS (4)
  - ARTHRITIS [None]
  - MUSCULOSKELETAL STIFFNESS [None]
  - DIZZINESS [None]
  - FATIGUE [None]
